FAERS Safety Report 7892895-4 (Version None)
Quarter: 2011Q4

REPORT INFORMATION
  Report Type: 
  Country: None (occurrence: None)
  Receive Date: 20111104
  Receipt Date: 20111027
  Transmission Date: 20120403
  Serious: Yes (Other)
  Sender: FDA-Public Use
  Company Number: US-UCBSA-044649

PATIENT
  Age: 49 Year
  Sex: Female

DRUGS (1)
  1. CIMZIA [Suspect]
     Indication: CROHN'S DISEASE
     Dosage: ONLY ONE DOSE
     Route: 058

REACTIONS (5)
  - FLUSHING [None]
  - DYSPNOEA [None]
  - ANXIETY [None]
  - THROAT TIGHTNESS [None]
  - SENSATION OF FOREIGN BODY [None]
